FAERS Safety Report 9023859 (Version 1)
Quarter: 2013Q1

REPORT INFORMATION
  Report Type: Spontaneous
  Country: US (occurrence: US)
  Receive Date: 20130121
  Receipt Date: 20130121
  Transmission Date: 20140127
  Serious: Yes (Hospitalization)
  Sender: FDA-Public Use
  Company Number: US-ELI_LILLY_AND_COMPANY-US201207008151

PATIENT
  Sex: Female

DRUGS (11)
  1. FORTEO [Suspect]
     Indication: OSTEOPOROSIS
     Dosage: 20 UG, QD
     Route: 065
     Dates: start: 2011, end: 201207
  2. PREDNISONE [Concomitant]
     Dosage: 5 MG, UNK
  3. METOPROLOL [Concomitant]
  4. NORVASC [Concomitant]
  5. LISINOPRIL [Concomitant]
  6. COUMADIN [Concomitant]
  7. VITAMIN D [Concomitant]
  8. OMEPRAZOLE [Concomitant]
     Indication: GASTROOESOPHAGEAL REFLUX DISEASE
  9. LYRICA [Concomitant]
  10. CELEBREX [Concomitant]
     Indication: PAIN
  11. TRAMADOL [Concomitant]
     Indication: PAIN

REACTIONS (7)
  - Peripheral vascular disorder [Unknown]
  - Pulmonary embolism [Unknown]
  - Dizziness [Unknown]
  - Coordination abnormal [Unknown]
  - Jaw fracture [Unknown]
  - Jaw fracture [Unknown]
  - Intentional drug misuse [Unknown]
